FAERS Safety Report 21936197 (Version 2)
Quarter: 2023Q1

REPORT INFORMATION
  Report Type: Report from Study
  Country: BR (occurrence: BR)
  Receive Date: 20230201
  Receipt Date: 20230329
  Transmission Date: 20230418
  Serious: Yes (Hospitalization, Other)
  Sender: FDA-Public Use
  Company Number: BR-JNJFOC-20220962925

PATIENT
  Age: 41 Year
  Sex: Female
  Weight: 89 kg

DRUGS (8)
  1. INFLIXIMAB [Suspect]
     Active Substance: INFLIXIMAB
     Indication: Ankylosing spondylitis
     Dosage: 5 VIALS LAST APPLICATION: 30/MAY/2022
     Route: 041
     Dates: start: 20171025
  2. REMICADE [Suspect]
     Active Substance: INFLIXIMAB
     Indication: Ankylosing spondylitis
     Route: 041
     Dates: start: 20171025
  3. ACETAMINOPHEN [Suspect]
     Active Substance: ACETAMINOPHEN
     Indication: Product used for unknown indication
     Route: 065
  4. PREDNISONE [Concomitant]
     Active Substance: PREDNISONE
  5. CEFTRIAXONE SODIUM [Concomitant]
     Active Substance: CEFTRIAXONE SODIUM
  6. MORPHINE [Concomitant]
     Active Substance: MORPHINE
  7. DRAMAMINE [Concomitant]
     Active Substance: DIMENHYDRINATE
  8. ONDANSETRON HYDROCHLORIDE [Concomitant]
     Active Substance: ONDANSETRON HYDROCHLORIDE

REACTIONS (15)
  - Stevens-Johnson syndrome [Not Recovered/Not Resolved]
  - COVID-19 [Unknown]
  - Loss of consciousness [Unknown]
  - Inflammatory bowel disease [Unknown]
  - Ankylosing spondylitis [Unknown]
  - Epilepsy [Unknown]
  - Musculoskeletal stiffness [Unknown]
  - Paraesthesia [Unknown]
  - Lactose intolerance [Recovering/Resolving]
  - Memory impairment [Unknown]
  - Somnolence [Unknown]
  - Vomiting [Unknown]
  - Infusion related reaction [Unknown]
  - Drug ineffective [Unknown]
  - Off label use [Unknown]

NARRATIVE: CASE EVENT DATE: 20220101
